FAERS Safety Report 14569571 (Version 2)
Quarter: 2018Q1

REPORT INFORMATION
  Report Type: Spontaneous
  Country: US (occurrence: US)
  Receive Date: 20180224
  Receipt Date: 20180315
  Transmission Date: 20180509
  Serious: Yes (Other)
  Sender: FDA-Public Use
  Company Number: US-ACCORD-063655

PATIENT
  Age: 66 Year
  Sex: Male

DRUGS (2)
  1. METHOTREXATE. [Suspect]
     Active Substance: METHOTREXATE
     Indication: AMAUROSIS
     Dosage: 7.5 MG WEEKLY
     Route: 048
  2. PREDNISONE. [Suspect]
     Active Substance: PREDNISONE
     Indication: AMAUROSIS
     Route: 048

REACTIONS (4)
  - Off label use [Unknown]
  - Haemorrhoidal haemorrhage [Unknown]
  - Duodenal ulcer [Unknown]
  - Anaemia [Recovering/Resolving]
